FAERS Safety Report 7787582-7 (Version None)
Quarter: 2011Q3

REPORT INFORMATION
  Report Type: 
  Country: None (occurrence: None)
  Receive Date: 20110929
  Receipt Date: 20110919
  Transmission Date: 20111222
  Serious: Yes (Other)
  Sender: FDA-Public Use
  Company Number: SA-BAXTER-2009BH004913

PATIENT
  Age: 37 Year
  Sex: Male

DRUGS (2)
  1. INSULIN [Concomitant]
     Indication: DIABETES MELLITUS
     Route: 065
  2. DIANEAL [Suspect]
     Indication: RENAL FAILURE CHRONIC
     Route: 033

REACTIONS (4)
  - DEPRESSED LEVEL OF CONSCIOUSNESS [None]
  - HYPOGLYCAEMIA [None]
  - CONVULSION [None]
  - DEVICE INTERACTION [None]
